FAERS Safety Report 5214249-1 (Version None)
Quarter: 2007Q1

REPORT INFORMATION
  Report Type: 
  Country: None (occurrence: None)
  Receive Date: 20070122
  Receipt Date: 20070115
  Transmission Date: 20070707
  Serious: Yes (Hospitalization)
  Sender: FDA-Public Use
  Company Number: 2007AP00525

PATIENT
  Age: 17361 Day
  Sex: Female

DRUGS (11)
  1. IRESSA [Suspect]
     Indication: NON-SMALL CELL LUNG CANCER
     Route: 048
     Dates: start: 20061010, end: 20070112
  2. MYONAL [Suspect]
     Indication: MUSCLE RELAXANT THERAPY
     Route: 048
     Dates: start: 20070111, end: 20070112
  3. NEXIUM [Concomitant]
     Indication: DYSPEPSIA
     Route: 048
     Dates: start: 20060618
  4. LEXOTAN [Concomitant]
     Indication: INSOMNIA
     Route: 048
     Dates: start: 20060927
  5. SENOKOT [Concomitant]
     Indication: CONSTIPATION
     Route: 048
     Dates: start: 20060927
  6. MORIAMIN FORTE [Concomitant]
     Indication: SUPPLEMENTATION THERAPY
     Route: 048
     Dates: start: 20060927
  7. NASATHERA [Concomitant]
     Indication: RHINITIS
     Route: 048
     Dates: start: 20061114
  8. AMOXICILLIN + CLAVULANATE POTASSIUM [Concomitant]
     Indication: RHINITIS
     Route: 048
     Dates: start: 20061114
  9. LORATADINE [Concomitant]
     Indication: RHINITIS
     Route: 048
     Dates: start: 20061114
  10. CENTRUM [Concomitant]
     Indication: SUPPLEMENTATION THERAPY
     Route: 048
     Dates: start: 20070111, end: 20070112
  11. CELEBREX [Concomitant]
     Indication: ANALGESIC EFFECT
     Route: 048
     Dates: start: 20060111, end: 20070112

REACTIONS (1)
  - ABDOMINAL PAIN UPPER [None]
